FAERS Safety Report 5374216-4 (Version None)
Quarter: 2007Q2

REPORT INFORMATION
  Report Type: 
  Country: None (occurrence: None)
  Receive Date: 20070627
  Receipt Date: 20060728
  Transmission Date: 20071010
  Serious: Yes (Other)
  Sender: FDA-Public Use
  Company Number: 457637

PATIENT
  Age: 32 Year
  Sex: Male
  Weight: 128.8 kg

DRUGS (1)
  1. XELODA [Suspect]
     Indication: COLON CANCER
     Dosage: 5500 MG DAILY 2 PER DAY ORAL
     Route: 048
     Dates: start: 20060613

REACTIONS (2)
  - CHRONIC SINUSITIS [None]
  - HEADACHE [None]
